FAERS Safety Report 9346313 (Version 1)
Quarter: 2013Q2

REPORT INFORMATION
  Report Type: Spontaneous
  Country: DE (occurrence: DE)
  Receive Date: 20130613
  Receipt Date: 20130613
  Transmission Date: 20140414
  Serious: Yes (Congenital Anomaly, Other)
  Sender: FDA-Public Use
  Company Number: DE-ELI_LILLY_AND_COMPANY-DE201306002038

PATIENT
  Age: 0 Day
  Sex: Female

DRUGS (6)
  1. FLUOXETINE [Suspect]
     Indication: DEPRESSION
     Dosage: 80 MG, QD
     Route: 064
  2. DIPIPERON [Concomitant]
     Indication: PSYCHOTIC DISORDER
     Dosage: 40 MG, QD
     Route: 064
  3. METHYLPHENIDATE [Concomitant]
     Indication: DEPRESSION
     Dosage: 40 MG, QD
     Route: 064
  4. FOLIC ACID FORTE [Concomitant]
     Indication: PROPHYLAXIS
     Dosage: 0.8 MG, QD
     Route: 064
  5. INSULIN [Concomitant]
  6. IODINE [Concomitant]
     Indication: PROPHYLAXIS
     Route: 064

REACTIONS (8)
  - Bradycardia [Recovered/Resolved]
  - Neonatal respiratory distress syndrome [Recovered/Resolved]
  - Hypoglycaemia neonatal [Recovered/Resolved]
  - Atrial septal defect [Recovered/Resolved]
  - Patent ductus arteriosus [Recovered/Resolved]
  - Premature baby [Unknown]
  - Large for dates baby [Unknown]
  - Exposure during pregnancy [Recovered/Resolved]
